FAERS Safety Report 20567775 (Version 1)
Quarter: 2022Q1

REPORT INFORMATION
  Report Type: Spontaneous
  Country: US (occurrence: None)
  Receive Date: 20220308
  Receipt Date: 20220308
  Transmission Date: 20220423
  Serious: Yes (Other)
  Sender: FDA-Public Use
  Company Number: None

PATIENT

DRUGS (2)
  1. CILGAVIMAB [Suspect]
     Active Substance: CILGAVIMAB
     Route: 030
     Dates: start: 20220217, end: 20220217
  2. TIXAGEVIMAB [Suspect]
     Active Substance: TIXAGEVIMAB
     Route: 030
     Dates: start: 20220217, end: 20220217

REACTIONS (1)
  - Pruritus [None]

NARRATIVE: CASE EVENT DATE: 20220218
